FAERS Safety Report 19417726 (Version 2)
Quarter: 2021Q2

REPORT INFORMATION
  Report Type: Spontaneous
  Country: FR (occurrence: FR)
  Receive Date: 20210615
  Receipt Date: 20210621
  Transmission Date: 20210717
  Serious: Yes (Other)
  Sender: FDA-Public Use
  Company Number: FR-TEVA-2021-FR-1921476

PATIENT
  Age: 67 Year
  Sex: Male
  Weight: 80 kg

DRUGS (9)
  1. URAPIDIL [Suspect]
     Active Substance: URAPIDIL
     Indication: HYPERTENSION
     Dosage: 232 MG, 13 MG / HOUR?1ST ADMINISTRATION TIME: D4
     Route: 042
     Dates: start: 20210426, end: 20210430
  2. SUFENTANIL [Suspect]
     Active Substance: SUFENTANIL
     Indication: SEDATION
     Dosage: 10 UG / HOUR?1ST ADMINISTRATION TIME: D16
     Route: 042
     Dates: start: 20210414, end: 20210524
  3. AMLODIPINE [Suspect]
     Active Substance: AMLODIPINE BESYLATE
     Indication: HYPERTENSION
     Dosage: 10MG
     Route: 048
     Dates: end: 20210511
  4. FUROSEMIDE. [Suspect]
     Active Substance: FUROSEMIDE
     Indication: HYPERTENSION
     Dosage: 40MG
     Route: 042
     Dates: start: 20210426, end: 20210430
  5. TAZOCILLINE [Suspect]
     Active Substance: PIPERACILLIN SODIUM\TAZOBACTAM SODIUM
     Indication: INFECTION
     Dosage: 4GM
     Route: 042
     Dates: start: 20210428, end: 20210429
  6. NICARDIPINE (CHLORHYDRATE DE) [Suspect]
     Active Substance: NICARDIPINE HYDROCHLORIDE
     Indication: HYPERTENSION
     Dosage: 2 MG / H?1ST ADMINISTRATION TIME: D11, 50MG
     Route: 042
     Dates: start: 20210418, end: 20210418
  7. PROPOFOL. [Suspect]
     Active Substance: PROPOFOL
     Indication: SEDATION
     Dosage: 1ST ADMINISTRATION TIME: D16, 200MG
     Route: 042
     Dates: start: 20210414, end: 20210511
  8. MIDAZOLAM. [Suspect]
     Active Substance: MIDAZOLAM
     Indication: SEDATION
     Dosage: 1ST ADMINISTRATION TIME: D10, 25MG
     Route: 042
     Dates: start: 20210419, end: 20210509
  9. LOVENOX [Suspect]
     Active Substance: ENOXAPARIN SODIUM
     Indication: THROMBOSIS PROPHYLAXIS
     Dosage: 1.6 ML DAILY; THERAPY END DATE ASKU
     Route: 058
     Dates: start: 20210414

REACTIONS (1)
  - Drug reaction with eosinophilia and systemic symptoms [Recovering/Resolving]

NARRATIVE: CASE EVENT DATE: 20210429
